FAERS Safety Report 10998709 (Version 7)
Quarter: 2016Q2

REPORT INFORMATION
  Report Type: Spontaneous
  Country: US (occurrence: US)
  Receive Date: 20150408
  Receipt Date: 20160519
  Transmission Date: 20160815
  Serious: Yes (Hospitalization, Other)
  Sender: FDA-Public Use
  Company Number: US-PFIZER INC-2015120370

PATIENT
  Age: 66 Year
  Sex: Male

DRUGS (5)
  1. LISINOPRIL. [Concomitant]
     Active Substance: LISINOPRIL
     Dosage: UNK
  2. ATENOLOL. [Concomitant]
     Active Substance: ATENOLOL
     Dosage: 50 MG, DAILY
     Dates: start: 2006
  3. XANAX [Concomitant]
     Active Substance: ALPRAZOLAM
     Dosage: UNK
  4. PEPCID [Concomitant]
     Active Substance: FAMOTIDINE
     Indication: GASTROOESOPHAGEAL REFLUX DISEASE
     Dosage: 40 MG, DAILY
     Dates: start: 20150831
  5. PROTONIX [Suspect]
     Active Substance: PANTOPRAZOLE SODIUM
     Indication: GASTROOESOPHAGEAL REFLUX DISEASE
     Dosage: 40 MG, 1X/DAY
     Route: 048
     Dates: start: 2006, end: 20150303

REACTIONS (21)
  - Urticaria [Recovered/Resolved with Sequelae]
  - Intestinal ulcer [Unknown]
  - Feeling abnormal [Unknown]
  - Tremor [Not Recovered/Not Resolved]
  - Abdominal pain [Unknown]
  - Blood sodium increased [Unknown]
  - Blood pressure abnormal [Unknown]
  - Back injury [Recovered/Resolved]
  - Heart rate irregular [Unknown]
  - Scar [Unknown]
  - Joint injury [Recovered/Resolved]
  - Swelling [Not Recovered/Not Resolved]
  - Drug hypersensitivity [Unknown]
  - Blood electrolytes decreased [Unknown]
  - Gastric ulcer [Not Recovered/Not Resolved]
  - Vision blurred [Not Recovered/Not Resolved]
  - Peripheral swelling [Unknown]
  - Abdominal discomfort [Unknown]
  - Weight decreased [Unknown]
  - Malaise [Recovering/Resolving]
  - Pain in extremity [Unknown]

NARRATIVE: CASE EVENT DATE: 201110
